FAERS Safety Report 8154606-7 (Version None)
Quarter: 2012Q1

REPORT INFORMATION
  Report Type: 
  Country: None (occurrence: None)
  Receive Date: 20120202
  Receipt Date: 20111006
  Transmission Date: 20120608
  Serious: Yes (Other)
  Sender: FDA-Public Use
  Company Number: 0221802

PATIENT
  Age: 72 Year
  Sex: Male

DRUGS (6)
  1. CONFIDEX (FACTOR IX) [Concomitant]
  2. TACHOSIL [Suspect]
     Indication: PULMONARY OEDEMA
     Dates: start: 20110101
  3. TACHOSIL [Suspect]
     Indication: PULMONARY OEDEMA
     Dates: start: 20110610
  4. PROTAMINE SULFATE [Concomitant]
  5. CYKLOKAPRON [Concomitant]
  6. WARAN (WARFARIN) [Concomitant]

REACTIONS (2)
  - ANAPHYLACTIC REACTION [None]
  - PULMONARY OEDEMA [None]
